FAERS Safety Report 14502793 (Version 1)
Quarter: 2018Q1

REPORT INFORMATION
  Report Type: Spontaneous
  Country: BR (occurrence: BR)
  Receive Date: 20180208
  Receipt Date: 20180208
  Transmission Date: 20180509
  Serious: Yes (Other)
  Sender: FDA-Public Use
  Company Number: BR-TORRENT-00004266

PATIENT
  Age: 82 Year
  Sex: Female
  Weight: 53 kg

DRUGS (5)
  1. PANTOPRAZOL [Concomitant]
     Active Substance: PANTOPRAZOLE SODIUM
     Indication: ULCER
     Dosage: ONE TABLET DAILY
     Route: 048
     Dates: start: 20180122
  2. VITAMIN D [Concomitant]
     Active Substance: CHOLECALCIFEROL
     Indication: PRODUCT USED FOR UNKNOWN INDICATION
     Route: 048
     Dates: start: 201708
  3. PROLIA [Concomitant]
     Active Substance: DENOSUMAB
     Indication: OSTEOPOROSIS
     Dosage: THERAPY END AT EVERY 6 MONTHS
     Route: 058
     Dates: start: 201801
  4. EPEZ [Suspect]
     Active Substance: DONEPEZIL HYDROCHLORIDE
     Indication: DEMENTIA ALZHEIMER^S TYPE
     Dosage: ONE TABLET DAILY
     Route: 048
     Dates: start: 201708, end: 201801
  5. PRESSAT [Concomitant]
     Active Substance: AMLODIPINE BESYLATE
     Indication: BLOOD PRESSURE FLUCTUATION
     Dosage: ONE TABLET DAILY
     Route: 048
     Dates: start: 201708

REACTIONS (7)
  - Suffocation feeling [Recovered/Resolved]
  - Skin exfoliation [Recovered/Resolved]
  - Limb discomfort [Recovered/Resolved]
  - Swollen tongue [Recovered/Resolved]
  - Malaise [Recovered/Resolved]
  - Burning sensation [Recovered/Resolved]
  - Choking [Recovered/Resolved]

NARRATIVE: CASE EVENT DATE: 201711
